FAERS Safety Report 8181216-8 (Version None)
Quarter: 2012Q1

REPORT INFORMATION
  Report Type: 
  Country: None (occurrence: None)
  Receive Date: 20120302
  Receipt Date: 20120220
  Transmission Date: 20120608
  Serious: Yes (Hospitalization)
  Sender: FDA-Public Use
  Company Number: FR-GILEAD-2012-0051161

PATIENT
  Age: 47 Year
  Sex: Male

DRUGS (12)
  1. REVLIMID [Suspect]
     Indication: KAPOSI'S SARCOMA
     Dosage: 25 MG, QD
     Route: 048
     Dates: start: 20120105, end: 20120119
  2. OXYCODONE HCL [Concomitant]
  3. EMTRICITABINE AND TENOFOVIR DISOPROXIL FUMARATE [Suspect]
     Indication: HIV INFECTION
     Dosage: 1 DF, QD
     Route: 048
     Dates: start: 20100507, end: 20120119
  4. ZOLPIDEM [Concomitant]
  5. OXYCONTIN [Concomitant]
  6. LYRICA [Concomitant]
     Route: 048
  7. DEXERYL                            /01579901/ [Concomitant]
  8. KALETRA [Concomitant]
     Indication: HIV INFECTION
     Dosage: UNK
     Route: 048
  9. PRIMPERAN TAB [Concomitant]
  10. RAMIPRIL [Concomitant]
     Dosage: UNK
     Dates: end: 20120119
  11. ISENTRESS [Concomitant]
     Indication: HIV INFECTION
     Dosage: UNK
     Route: 048
  12. LORAZEPAM [Concomitant]

REACTIONS (2)
  - HYPERKALAEMIA [None]
  - RENAL FAILURE ACUTE [None]
